FAERS Safety Report 9548744 (Version 1)
Quarter: 2013Q2

REPORT INFORMATION
  Report Type: Spontaneous
  Country: US (occurrence: None)
  Receive Date: 20130627
  Receipt Date: 20130627
  Transmission Date: 20140414
  Serious: Yes (Other)
  Sender: FDA-Public Use
  Company Number: 1000044110

PATIENT
  Age: 51 Year
  Sex: Female

DRUGS (4)
  1. LINZESS [Suspect]
     Indication: IRRITABLE BOWEL SYNDROME
     Route: 048
     Dates: start: 201302, end: 201303
  2. SPIRIVA (TIOTROPIUM BROMIDE) [Concomitant]
  3. SYMBICORT [Concomitant]
  4. LORTAB (ACETAMINOPHEN, HYDROCODONE) [Concomitant]

REACTIONS (3)
  - Decreased appetite [None]
  - Diarrhoea [None]
  - Flatulence [None]
